FAERS Safety Report 6626018-6 (Version None)
Quarter: 2010Q1

REPORT INFORMATION
  Report Type: 
  Country: None (occurrence: None)
  Receive Date: 20100310
  Receipt Date: 20100308
  Transmission Date: 20100710
  Serious: Yes (Hospitalization)
  Sender: FDA-Public Use
  Company Number: FR-WYE-G05703010

PATIENT
  Sex: Female
  Weight: 29 kg

DRUGS (3)
  1. ADVIL LIQUI-GELS [Suspect]
     Indication: COUGH
     Dosage: 1 DOSE FORM
     Route: 048
     Dates: start: 20100212, end: 20100212
  2. HELICIDINE [Suspect]
     Indication: COUGH
     Route: 048
     Dates: start: 20100212, end: 20100212
  3. ZITHROMAX [Suspect]
     Indication: COUGH
     Route: 048
     Dates: start: 20100212, end: 20100212

REACTIONS (1)
  - CYTOLYTIC HEPATITIS [None]
